FAERS Safety Report 8763765 (Version 2)
Quarter: 2012Q4

REPORT INFORMATION
  Report Type: 
  Country: JP (occurrence: JP)
  Receive Date: 20120831
  Receipt Date: 20121003
  Transmission Date: 20130627
  Serious: Yes (Other)
  Sender: FDA-Public Use
  Company Number: PHHY2012JP075082

PATIENT
  Age: 87 Year
  Sex: Female

DRUGS (6)
  1. EXELON PATCH [Suspect]
     Indication: DEMENTIA ALZHEIMER^S TYPE
     Dosage: 4.5 mg Daily
     Route: 062
     Dates: start: 20120615, end: 20120628
  2. EXELON PATCH [Suspect]
     Dosage: 9 mg Daily
     Route: 062
     Dates: start: 20120629, end: 20120726
  3. EXELON PATCH [Suspect]
     Dosage: 13.5 mg Daily
     Route: 062
     Dates: start: 20120727
  4. MEMANTINE HYDROCHLORIDE [Suspect]
     Indication: DEMENTIA ALZHEIMER^S TYPE
     Dosage: 10 mg Daily
     Dates: start: 20120615, end: 20120629
  5. MEMANTINE HYDROCHLORIDE [Suspect]
     Dosage: 15 mg Daily
     Dates: start: 20120629, end: 20120713
  6. MEMANTINE HYDROCHLORIDE [Suspect]
     Dosage: 5 mg Daily
     Dates: start: 20120727

REACTIONS (3)
  - Delirium [Not Recovered/Not Resolved]
  - Poriomania [Not Recovered/Not Resolved]
  - Sedation [Unknown]
